FAERS Safety Report 24923194 (Version 2)
Quarter: 2025Q1

REPORT INFORMATION
  Report Type: Report from Study
  Country: US (occurrence: US)
  Receive Date: 20250204
  Receipt Date: 20250225
  Transmission Date: 20250409
  Serious: Yes (Other)
  Sender: ALEXION PHARMACEUTICALS
  Company Number: US-AstraZeneca-CH-00795245A

PATIENT

DRUGS (1)
  1. SOLIRIS [Suspect]
     Active Substance: ECULIZUMAB
     Route: 065

REACTIONS (4)
  - Brain stem stroke [Unknown]
  - Carpal tunnel syndrome [Unknown]
  - Cubital tunnel syndrome [Unknown]
  - Condition aggravated [Unknown]
